FAERS Safety Report 21884410 (Version 1)
Quarter: 2023Q1

REPORT INFORMATION
  Report Type: Other
  Country: BR (occurrence: None)
  Receive Date: 20230119
  Receipt Date: 20230119
  Transmission Date: 20230418
  Serious: No
  Sender: FDA-Public Use
  Company Number: BR-ROCHE-3266439

PATIENT
  Age: 44 Year
  Sex: Female
  Weight: 130 kg

DRUGS (4)
  1. OCREVUS [Suspect]
     Active Substance: OCRELIZUMAB
     Indication: Multiple sclerosis
     Dosage: 300MG AND ANOTHER OF 300MG AFTER 15 DAYS, 60 DROPS/MIN
     Route: 042
     Dates: start: 20210419
  2. CORUS (BRAZIL) [Concomitant]
  3. AMLODIPINE [Concomitant]
     Active Substance: AMLODIPINE BESYLATE
  4. NAPROXEN [Concomitant]
     Active Substance: NAPROXEN
     Route: 048

REACTIONS (5)
  - COVID-19 [Unknown]
  - Underdose [Unknown]
  - Inappropriate schedule of product administration [Unknown]
  - Throat irritation [Unknown]
  - Ear discomfort [Unknown]
